FAERS Safety Report 4614623-8 (Version None)
Quarter: 2005Q2

REPORT INFORMATION
  Report Type: 
  Country: None (occurrence: None)
  Receive Date: 20050303
  Receipt Date: 20040805
  Transmission Date: 20051028
  Serious: Yes (Hospitalization)
  Sender: FDA-Public Use
  Company Number: WAES 0408USA00526

PATIENT
  Age: 59 Year
  Sex: Male
  Weight: 83.4619 kg

DRUGS (6)
  1. PRINIVIL [Suspect]
     Indication: HYPERTENSION
     Dosage: 40 MG/DAILY/PO
     Route: 048
     Dates: start: 20011205, end: 20040110
  2. PRINIVIL [Suspect]
     Indication: HYPERTENSION
     Dosage: 40 MG/DAILY/PO
     Route: 048
     Dates: start: 20040122
  3. NOVOLIN [Concomitant]
  4. ASPIRIN [Concomitant]
  5. ATENOLOL [Concomitant]
  6. LOVASTATIN [Concomitant]

REACTIONS (1)
  - PANCREATITIS [None]
